FAERS Safety Report 18725943 (Version 1)
Quarter: 2021Q1

REPORT INFORMATION
  Report Type: Report from Study
  Country: GB (occurrence: GB)
  Receive Date: 20210111
  Receipt Date: 20210111
  Transmission Date: 20210419
  Serious: Yes (Other)
  Sender: FDA-Public Use
  Company Number: NVSC2021GB004568

PATIENT
  Sex: Female

DRUGS (1)
  1. HYRIMOZ [Suspect]
     Active Substance: ADALIMUMAB-ADAZ
     Indication: HIDRADENITIS
     Dosage: 160 MG, QW (LOADING DOSE WEEK 0 (160MG), WEEK 2 (80MG), WEEK 4 (40MG), MAINTENANCE DOSE: 40MG WEEKLY
     Route: 065
     Dates: start: 20201208

REACTIONS (1)
  - SARS-CoV-2 test positive [Unknown]
